APPROVED DRUG PRODUCT: KEFLEX
Active Ingredient: CEPHALEXIN
Strength: EQ 333MG BASE **Federal Register determination that product was not discontinued or withdrawn for safety or effectiveness reasons**
Dosage Form/Route: CAPSULE;ORAL
Application: N050405 | Product #004
Applicant: PRAGMA PHARMACEUTICALS LLC
Approved: May 12, 2006 | RLD: Yes | RS: No | Type: DISCN